FAERS Safety Report 9195178 (Version 1)
Quarter: 2013Q1

REPORT INFORMATION
  Report Type: Spontaneous
  Country: US (occurrence: US)
  Receive Date: 20130328
  Receipt Date: 20130328
  Transmission Date: 20140127
  Serious: No
  Sender: FDA-Public Use
  Company Number: US-ALLERGAN-1216645US

PATIENT
  Age: 51 Year
  Sex: Female

DRUGS (4)
  1. LATISSE 0.03% [Suspect]
     Indication: GROWTH OF EYELASHES
     Dosage: 2 GTT, QOD
     Route: 061
     Dates: start: 201202
  2. LATISSE 0.03% [Suspect]
     Dosage: 2 GTT, UNK
     Route: 061
     Dates: start: 201111, end: 201202
  3. VITAMINS [Concomitant]
     Indication: SUPPLEMENTATION THERAPY
     Dosage: UNK, QD
     Route: 048
  4. CLEAR EYES                         /00419602/ [Concomitant]
     Indication: EYE LUBRICATION THERAPY
     Dosage: 2 GTT, QD
     Route: 047

REACTIONS (4)
  - Inappropriate schedule of drug administration [Unknown]
  - Madarosis [Recovered/Resolved]
  - Madarosis [Not Recovered/Not Resolved]
  - Madarosis [Unknown]
